FAERS Safety Report 23730312 (Version 1)
Quarter: 2024Q2

REPORT INFORMATION
  Report Type: Spontaneous
  Country: US (occurrence: US)
  Receive Date: 20240411
  Receipt Date: 20240411
  Transmission Date: 20240715
  Serious: Yes (Other)
  Sender: FDA-Public Use
  Company Number: US-BoehringerIngelheim-2024-BI-020721

PATIENT
  Age: 30 Year
  Sex: Female

DRUGS (1)
  1. PRADAXA [Suspect]
     Active Substance: DABIGATRAN ETEXILATE MESYLATE
     Indication: Coagulopathy
     Route: 048
     Dates: start: 20231215, end: 20240405

REACTIONS (6)
  - Gastric haemorrhage [Unknown]
  - Product use in unapproved indication [Unknown]
  - Prescribed overdose [Unknown]
  - Dizziness [Unknown]
  - Diarrhoea [Unknown]
  - Abdominal pain upper [Unknown]

NARRATIVE: CASE EVENT DATE: 20231215
